FAERS Safety Report 19721248 (Version 2)
Quarter: 2021Q4

REPORT INFORMATION
  Report Type: Report from Study
  Country: DE (occurrence: DE)
  Receive Date: 20210819
  Receipt Date: 20211210
  Transmission Date: 20220304
  Serious: Yes (Hospitalization, Other)
  Sender: FDA-Public Use
  Company Number: DE-AMGEN-DEUNI2021124691

PATIENT
  Age: 61 Year
  Sex: Male
  Weight: 64 kg

DRUGS (52)
  1. PANITUMUMAB [Suspect]
     Active Substance: PANITUMUMAB
     Indication: Colorectal cancer metastatic
     Dosage: 380 MILLIGRAM
     Route: 042
     Dates: start: 20200427
  2. PANITUMUMAB [Suspect]
     Active Substance: PANITUMUMAB
     Dosage: 385 MILLIGRAM
     Route: 042
     Dates: start: 20200608
  3. PANITUMUMAB [Suspect]
     Active Substance: PANITUMUMAB
     Dosage: 420 MILLIGRAM
     Route: 042
     Dates: start: 20200622
  4. PANITUMUMAB [Suspect]
     Active Substance: PANITUMUMAB
     Dosage: 425 MILLIGRAM
     Route: 042
     Dates: start: 20200706
  5. PANITUMUMAB [Suspect]
     Active Substance: PANITUMUMAB
     Dosage: 400 MILLIGRAM
     Route: 042
     Dates: start: 20200803
  6. PANITUMUMAB [Suspect]
     Active Substance: PANITUMUMAB
     Dosage: 380 MILLIGRAM
     Route: 042
     Dates: start: 20200831
  7. PANITUMUMAB [Suspect]
     Active Substance: PANITUMUMAB
     Dosage: 390 MILLIGRAM
     Route: 042
     Dates: start: 20201123
  8. PANITUMUMAB [Suspect]
     Active Substance: PANITUMUMAB
     Dosage: 365 MILLIGRAM
     Route: 042
     Dates: start: 20201012
  9. PANITUMUMAB [Suspect]
     Active Substance: PANITUMUMAB
     Dosage: 365 MILLIGRAM
     Route: 042
     Dates: start: 20201026
  10. PANITUMUMAB [Suspect]
     Active Substance: PANITUMUMAB
     Dosage: 350 MILLIGRAM
     Route: 042
     Dates: start: 20201214
  11. PANITUMUMAB [Suspect]
     Active Substance: PANITUMUMAB
     Dosage: 365 MILLIGRAM
     Route: 042
     Dates: start: 20201230
  12. PANITUMUMAB [Suspect]
     Active Substance: PANITUMUMAB
     Dosage: 350 MILLIGRAM
     Route: 042
     Dates: start: 20210128
  13. PANITUMUMAB [Suspect]
     Active Substance: PANITUMUMAB
     Dosage: 385 MILLIGRAM
     Route: 042
     Dates: start: 20210317
  14. PANITUMUMAB [Suspect]
     Active Substance: PANITUMUMAB
     Dosage: 375 MILLIGRAM
     Route: 042
     Dates: start: 20210608
  15. PANITUMUMAB [Suspect]
     Active Substance: PANITUMUMAB
     Dosage: 395 MILLIGRAM
     Route: 042
     Dates: start: 20210706
  16. FLUOROURACIL [Suspect]
     Active Substance: FLUOROURACIL
     Indication: Colorectal cancer metastatic
     Dosage: 700 MILLIGRAM
     Route: 040
     Dates: start: 20200427
  17. FLUOROURACIL [Suspect]
     Active Substance: FLUOROURACIL
     Dosage: 2110 MILLIGRAM
     Route: 042
     Dates: start: 20200427
  18. FLUOROURACIL [Suspect]
     Active Substance: FLUOROURACIL
     Dosage: 2125 MILLIGRAM
     Route: 042
     Dates: start: 20200608
  19. FLUOROURACIL [Suspect]
     Active Substance: FLUOROURACIL
     Dosage: 735 MILLIGRAM
     Route: 040
     Dates: start: 20200706
  20. FLUOROURACIL [Suspect]
     Active Substance: FLUOROURACIL
     Dosage: 2220 MILLIGRAM
     Route: 042
     Dates: start: 20200706
  21. FLUOROURACIL [Suspect]
     Active Substance: FLUOROURACIL
     Dosage: 740 MILLIGRAM
     Route: 040
     Dates: start: 20200803
  22. FLUOROURACIL [Suspect]
     Active Substance: FLUOROURACIL
     Dosage: 4440 MILLIGRAM
     Route: 042
     Dates: start: 20200803
  23. FLUOROURACIL [Suspect]
     Active Substance: FLUOROURACIL
     Dosage: 730 MILLIGRAM
     Route: 040
     Dates: start: 20200817
  24. FLUOROURACIL [Suspect]
     Active Substance: FLUOROURACIL
     Dosage: 4370 MILLIGRAM
     Route: 042
     Dates: start: 20200817
  25. FLUOROURACIL [Suspect]
     Active Substance: FLUOROURACIL
     Dosage: 710 MILLIGRAM
     Route: 040
     Dates: start: 20200928
  26. FLUOROURACIL [Suspect]
     Active Substance: FLUOROURACIL
     Dosage: 4270 MILLIGRAM
     Route: 042
     Dates: start: 20200928
  27. FLUOROURACIL [Suspect]
     Active Substance: FLUOROURACIL
     Dosage: 700 MILLIGRAM
     Route: 040
     Dates: start: 20201012
  28. FLUOROURACIL [Suspect]
     Active Substance: FLUOROURACIL
     Dosage: 4225 MILLIGRAM
     Route: 042
     Dates: start: 20201012
  29. FLUOROURACIL [Suspect]
     Active Substance: FLUOROURACIL
     Dosage: 690 MILLIGRAM
     Route: 040
     Dates: start: 20201026
  30. FLUOROURACIL [Suspect]
     Active Substance: FLUOROURACIL
     Dosage: 4150 MILLIGRAM
     Route: 042
     Dates: start: 20201026
  31. FLUOROURACIL [Suspect]
     Active Substance: FLUOROURACIL
     Dosage: 680 MILLIGRAM
     Route: 040
     Dates: start: 20201214
  32. FLUOROURACIL [Suspect]
     Active Substance: FLUOROURACIL
     Dosage: 4045 MILLIGRAM
     Route: 042
     Dates: start: 20201214
  33. FLUOROURACIL [Suspect]
     Active Substance: FLUOROURACIL
     Dosage: 710 MILLIGRAM
     Route: 040
     Dates: start: 20210317
  34. FLUOROURACIL [Suspect]
     Active Substance: FLUOROURACIL
     Dosage: 4250 MILLIGRAM
     Route: 042
     Dates: start: 20210317
  35. FLUOROURACIL [Suspect]
     Active Substance: FLUOROURACIL
     Dosage: 700 MILLIGRAM
     Route: 040
     Dates: start: 20210622
  36. FLUOROURACIL [Suspect]
     Active Substance: FLUOROURACIL
     Dosage: 4225 MILLIGRAM
     Route: 042
     Dates: start: 20210622
  37. FLUOROURACIL [Suspect]
     Active Substance: FLUOROURACIL
     Dosage: 720 MILLIGRAM
     Route: 040
     Dates: start: 20210706
  38. FLUOROURACIL [Suspect]
     Active Substance: FLUOROURACIL
     Dosage: 4320 MILLIGRAM
     Route: 042
     Dates: start: 20210706
  39. LEUCOVORIN [Suspect]
     Active Substance: LEUCOVORIN
     Indication: Colorectal cancer metastatic
     Dosage: 350 MILLIGRAM
     Route: 065
     Dates: start: 20200427
  40. LEUCOVORIN [Suspect]
     Active Substance: LEUCOVORIN
     Dosage: 365 MILLIGRAM
     Route: 065
     Dates: start: 20200706
  41. LEUCOVORIN [Suspect]
     Active Substance: LEUCOVORIN
     Dosage: 740 MILLIGRAM
     Route: 065
     Dates: start: 20200803
  42. LEUCOVORIN [Suspect]
     Active Substance: LEUCOVORIN
     Dosage: 730 MILLIGRAM
     Route: 065
     Dates: start: 20200817
  43. LEUCOVORIN [Suspect]
     Active Substance: LEUCOVORIN
     Dosage: 710 MILLIGRAM
     Route: 065
     Dates: start: 20200928
  44. LEUCOVORIN [Suspect]
     Active Substance: LEUCOVORIN
     Dosage: 700 MILLIGRAM
     Route: 065
     Dates: start: 20201012
  45. LEUCOVORIN [Suspect]
     Active Substance: LEUCOVORIN
     Dosage: 690 MILLIGRAM
     Route: 065
     Dates: start: 20201026
  46. LEUCOVORIN [Suspect]
     Active Substance: LEUCOVORIN
     Dosage: 680 MILLIGRAM
     Route: 065
     Dates: start: 20201214
  47. LEUCOVORIN [Suspect]
     Active Substance: LEUCOVORIN
     Dosage: 710 MILLIGRAM
     Route: 065
     Dates: start: 20210317
  48. LEUCOVORIN [Suspect]
     Active Substance: LEUCOVORIN
     Dosage: 700 MILLIGRAM
     Route: 065
     Dates: start: 20210622
  49. LEUCOVORIN [Suspect]
     Active Substance: LEUCOVORIN
     Dosage: 720 MILLIGRAM
     Route: 065
     Dates: start: 20210706
  50. LEUCOVORIN [Suspect]
     Active Substance: LEUCOVORIN
     Dosage: 50 MILLIGRAM
     Route: 065
     Dates: start: 20210804
  51. OXALIPLATIN [Suspect]
     Active Substance: OXALIPLATIN
     Indication: Colorectal cancer metastatic
     Dosage: 150 MILLIGRAM
     Route: 065
     Dates: start: 20200427
  52. OXALIPLATIN [Suspect]
     Active Substance: OXALIPLATIN
     Dosage: 155 MILLIGRAM
     Route: 065
     Dates: start: 20200720

REACTIONS (2)
  - Mechanical ileus [Recovered/Resolved]
  - Pulmonary embolism [Recovering/Resolving]

NARRATIVE: CASE EVENT DATE: 20210520
